FAERS Safety Report 8347499-6 (Version None)
Quarter: 2012Q2

REPORT INFORMATION
  Report Type: 
  Country: None (occurrence: None)
  Receive Date: 20120509
  Receipt Date: 20120430
  Transmission Date: 20120825
  Serious: Yes (Hospitalization, Other)
  Sender: FDA-Public Use
  Company Number: US-ASTRAZENECA-2012SE21946

PATIENT
  Age: 53 Year
  Sex: Female

DRUGS (28)
  1. LASIX [Concomitant]
  2. LANTUS [Concomitant]
     Dosage: 50 UNITS BID
  3. VITAMIN B COMPLEX CAP [Concomitant]
  4. ESTRACE [Concomitant]
  5. GEMFIBROZIL [Concomitant]
  6. DURAGESIC-100 [Concomitant]
     Dosage: EVERY 48 HOURS
  7. VITAMIN C [Concomitant]
     Dosage: 1000 MCG
  8. LOPID [Concomitant]
  9. MICRO-K [Concomitant]
  10. LEVAQUIN [Concomitant]
     Dosage: AS REQUIRED
  11. ALDACTONE [Concomitant]
  12. PLAVIX [Concomitant]
  13. VITAMIN D [Concomitant]
     Dosage: 50,000 UNITS EVERY THREE MONTHS
  14. POTASSIUM CHLORIDE [Concomitant]
  15. VANCOMYCIN [Concomitant]
     Dosage: AS REQUIRED
  16. PHENERGAN [Concomitant]
     Dosage: 25 MG QID AS NEEDED
     Route: 048
  17. SYNTHROID [Concomitant]
     Route: 048
  18. NOVOLIN 70/30 [Concomitant]
     Dosage: 100 UNITS TID
  19. ASPIRIN [Concomitant]
     Route: 048
  20. LOVENOX [Concomitant]
  21. TOPROL-XL [Suspect]
     Route: 048
  22. TOPROL-XL [Suspect]
     Route: 048
  23. SYNTHROID [Concomitant]
     Route: 048
  24. LYRICA [Concomitant]
  25. REGLAN [Concomitant]
     Route: 048
  26. SKELAXIN [Concomitant]
     Dosage: 800 MG TID AS REQUIRED
  27. LIDODERM [Concomitant]
  28. PROTONIX [Concomitant]

REACTIONS (10)
  - LOBAR PNEUMONIA [None]
  - RENAL FAILURE ACUTE [None]
  - PLEURAL EFFUSION [None]
  - ATELECTASIS [None]
  - ACUTE MYOCARDIAL INFARCTION [None]
  - ABDOMINAL DISTENSION [None]
  - HYPOTENSION [None]
  - HEART RATE IRREGULAR [None]
  - HYPERTENSION [None]
  - CELLULITIS [None]
